FAERS Safety Report 25304538 (Version 1)
Quarter: 2025Q2

REPORT INFORMATION
  Report Type: Spontaneous
  Country: CN (occurrence: CN)
  Receive Date: 20250513
  Receipt Date: 20250513
  Transmission Date: 20250717
  Serious: Yes (Hospitalization)
  Sender: NOVARTIS
  Company Number: CN-002147023-NVSC2025CN076323

PATIENT
  Age: 53 Year
  Sex: Female
  Weight: 50 kg

DRUGS (3)
  1. SANDOSTATIN [Suspect]
     Active Substance: OCTREOTIDE ACETATE
     Indication: Pyrexia
     Dosage: 0.050 MG, BID
     Route: 058
     Dates: start: 20250416, end: 20250421
  2. SANDOSTATIN [Suspect]
     Active Substance: OCTREOTIDE ACETATE
     Indication: Chylothorax
     Dosage: 0.05 MG, TID
     Route: 058
     Dates: start: 20250421, end: 20250427
  3. SANDOSTATIN [Suspect]
     Active Substance: OCTREOTIDE ACETATE

REACTIONS (3)
  - Nausea [Unknown]
  - Vomiting [Unknown]
  - Pleural effusion [Unknown]

NARRATIVE: CASE EVENT DATE: 20250420
